FAERS Safety Report 8765223 (Version 2)
Quarter: 2012Q4

REPORT INFORMATION
  Report Type: 
  Country: US (occurrence: US)
  Receive Date: 20120903
  Receipt Date: 20121012
  Transmission Date: 20130627
  Serious: Yes (Other)
  Sender: FDA-Public Use
  Company Number: US-PFIZER INC-2012213335

PATIENT
  Age: 54 Year
  Sex: Female
  Weight: 63 kg

DRUGS (3)
  1. CELEBREX [Suspect]
     Indication: ARTHRITIS
     Dosage: 200 mg, 1x/day
     Route: 048
     Dates: start: 201204, end: 20120818
  2. CELEBREX [Suspect]
     Dosage: 200 mg, 1x/day
     Route: 048
     Dates: start: 20120821, end: 20120825
  3. ASPIRIN [Concomitant]
     Dosage: UNK

REACTIONS (18)
  - Hypertension [Unknown]
  - Hypotension [Unknown]
  - Hypoaesthesia [Unknown]
  - Lip disorder [Unknown]
  - Chest discomfort [Unknown]
  - Dizziness [Unknown]
  - Drooling [Unknown]
  - Malaise [Unknown]
  - Fatigue [Unknown]
  - Discomfort [Unknown]
  - Feeling abnormal [Unknown]
  - Asthenia [Unknown]
  - Fall [Unknown]
  - Arthropathy [Unknown]
  - Emotional disorder [Unknown]
  - Nervousness [Unknown]
  - Nausea [Unknown]
  - Paraesthesia [Unknown]
